FAERS Safety Report 19832156 (Version 1)
Quarter: 2021Q3

REPORT INFORMATION
  Report Type: Spontaneous
  Country: US (occurrence: US)
  Receive Date: 20210915
  Receipt Date: 20210915
  Transmission Date: 20211014
  Serious: Yes (Other)
  Sender: FDA-Public Use
  Company Number: None

PATIENT
  Age: 50 Year
  Sex: Female
  Weight: 193.9 kg

DRUGS (6)
  1. AZITHROMYCIN ANHYDROUS. [Concomitant]
     Active Substance: AZITHROMYCIN ANHYDROUS
     Dates: start: 20210908, end: 20210912
  2. REMDESIVIR. [Suspect]
     Active Substance: REMDESIVIR
     Indication: COVID-19
     Route: 042
     Dates: start: 20210908, end: 20210909
  3. BARICITINIB. [Concomitant]
     Active Substance: BARICITINIB
     Dates: start: 20210908, end: 20210909
  4. CEFTRIAXONE. [Concomitant]
     Active Substance: CEFTRIAXONE
     Dates: start: 20210908, end: 20210913
  5. DEXAMETHASONE. [Concomitant]
     Active Substance: DEXAMETHASONE
     Dates: start: 20210908, end: 20210913
  6. REMDESIVIR. [Concomitant]
     Active Substance: REMDESIVIR
     Dates: start: 20210908, end: 20210909

REACTIONS (4)
  - Hyperglycaemia [None]
  - Fatigue [None]
  - Bradycardia [None]
  - Asthenia [None]

NARRATIVE: CASE EVENT DATE: 20210909
